FAERS Safety Report 6768298-2 (Version None)
Quarter: 2010Q2

REPORT INFORMATION
  Report Type: 
  Country: None (occurrence: None)
  Receive Date: 20100614
  Receipt Date: 20100602
  Transmission Date: 20101027
  Serious: Yes (Hospitalization)
  Sender: FDA-Public Use
  Company Number: US-BIOGENIDEC-2010BI018693

PATIENT
  Age: 43 Year
  Sex: Female

DRUGS (2)
  1. AVONEX [Suspect]
     Indication: MULTIPLE SCLEROSIS
     Route: 030
     Dates: start: 20040806
  2. MEDICATIONS (NOS) [Concomitant]
     Dates: end: 20090901

REACTIONS (4)
  - BLADDER DISORDER [None]
  - GASTROENTERITIS ESCHERICHIA COLI [None]
  - MULTIPLE SCLEROSIS RELAPSE [None]
  - RHEUMATOID ARTHRITIS [None]
